FAERS Safety Report 4455104-4 (Version None)
Quarter: 2004Q3

REPORT INFORMATION
  Report Type: 
  Country: None (occurrence: None)
  Receive Date: 20040917
  Receipt Date: 20040907
  Transmission Date: 20050211
  Serious: Yes (Other)
  Sender: FDA-Public Use
  Company Number: HQWYE924908SEP04

PATIENT
  Age: 47 Year
  Sex: Male

DRUGS (2)
  1. ADVIL [Suspect]
     Indication: INFLAMMATION
     Dosage: ORAL
     Route: 048
  2. ADVIL [Suspect]
     Indication: PAIN IN EXTREMITY
     Dosage: ORAL
     Route: 048

REACTIONS (2)
  - HYPERTENSION [None]
  - PALPITATIONS [None]
